FAERS Safety Report 19361009 (Version 1)
Quarter: 2021Q2

REPORT INFORMATION
  Report Type: Report from Study
  Country: None (occurrence: US)
  Receive Date: 20210602
  Receipt Date: 20210602
  Transmission Date: 20210717
  Serious: No
  Sender: FDA-Public Use
  Company Number: US-MDD US OPERATIONS-USW202003-000619

PATIENT
  Age: 66 Year
  Sex: Male
  Weight: 65.77 kg

DRUGS (12)
  1. APOKYN [Suspect]
     Active Substance: APOMORPHINE HYDROCHLORIDE
     Route: 058
  2. APOKYN [Suspect]
     Active Substance: APOMORPHINE HYDROCHLORIDE
     Route: 058
  3. AMANTIDINE [Concomitant]
     Active Substance: AMANTADINE
     Dosage: NOT PROVIDED
  4. TAMSULOSIN [Concomitant]
     Active Substance: TAMSULOSIN
     Dosage: NOT PROVIDED
  5. APOKYN [Suspect]
     Active Substance: APOMORPHINE HYDROCHLORIDE
     Route: 058
  6. LEXAPRO [Concomitant]
     Active Substance: ESCITALOPRAM OXALATE
     Dosage: NOT PROVIDED
  7. CARBIDOPA/LEVODOPA [Concomitant]
     Active Substance: CARBIDOPA\LEVODOPA
     Dosage: NOT PROVIDED
  8. APOKYN [Suspect]
     Active Substance: APOMORPHINE HYDROCHLORIDE
     Indication: PARKINSON^S DISEASE
     Route: 058
     Dates: start: 20171204, end: 20200317
  9. APOKYN [Suspect]
     Active Substance: APOMORPHINE HYDROCHLORIDE
     Route: 058
     Dates: start: 20171204, end: 20200730
  10. APOKYN [Suspect]
     Active Substance: APOMORPHINE HYDROCHLORIDE
     Route: 058
  11. SINEMET [Concomitant]
     Active Substance: CARBIDOPA\LEVODOPA
     Dosage: NOT PROVIDED
  12. VESICARE [Concomitant]
     Active Substance: SOLIFENACIN SUCCINATE
     Dosage: NOT PROVIDED

REACTIONS (11)
  - Hallucination [Recovering/Resolving]
  - Confusional state [Recovered/Resolved]
  - Therapy non-responder [Unknown]
  - Cognitive disorder [Recovered/Resolved]
  - Confusional state [Recovering/Resolving]
  - Hallucination [Recovered/Resolved]
  - Agitation [Recovered/Resolved]
  - Parkinson^s disease [Recovered/Resolved]
  - Behaviour disorder [Recovered/Resolved]
  - Agitation [Recovering/Resolving]
  - Behaviour disorder [Recovered/Resolved]

NARRATIVE: CASE EVENT DATE: 2020
